FAERS Safety Report 5794510-2 (Version None)
Quarter: 2008Q2

REPORT INFORMATION
  Report Type: 
  Country: None (occurrence: None)
  Receive Date: 20080616
  Receipt Date: 20080610
  Transmission Date: 20081010
  Serious: Yes (Death, Hospitalization)
  Sender: FDA-Public Use
  Company Number: AECAN2008000090

PATIENT
  Age: 74 Year
  Sex: Male

DRUGS (11)
  1. GAMUNEX [Suspect]
     Indication: AUTOIMMUNE THROMBOCYTOPENIA
     Dosage: 137.5 GM;TOTAL;IV
     Route: 042
     Dates: start: 20080126, end: 20080130
  2. CLARITHROMYCIN [Concomitant]
  3. DEXAMETHASONE [Concomitant]
  4. LASIX /00032602 [Concomitant]
  5. SPIRONOLACTONE [Concomitant]
  6. METOLAZONE [Concomitant]
  7. AMITRIPTYLINE HCL [Concomitant]
  8. LEVOTHYROXINE SODIUM [Concomitant]
  9. INHALERS [Concomitant]
  10. GAMUNEX [Suspect]
  11. GAMUNEX [Suspect]

REACTIONS (4)
  - HAEMOLYTIC ANAEMIA [None]
  - PLEURAL EFFUSION [None]
  - PNEUMONIA [None]
  - SEPSIS [None]
